FAERS Safety Report 22196400 (Version 1)
Quarter: 2023Q2

REPORT INFORMATION
  Report Type: Spontaneous
  Country: DE (occurrence: None)
  Receive Date: 20230411
  Receipt Date: 20230411
  Transmission Date: 20230721
  Serious: Yes (Hospitalization, Other)
  Sender: FDA-Public Use
  Company Number: None

PATIENT
  Age: 33 Year
  Sex: Female
  Weight: 52 kg

DRUGS (58)
  1. CLONIDINE [Suspect]
     Active Substance: CLONIDINE
     Indication: Hypertension
     Dosage: UNKNOWN
     Route: 042
     Dates: start: 20011205
  2. AMOXICILLIN\CLAVULANATE POTASSIUM [Suspect]
     Active Substance: AMOXICILLIN\CLAVULANATE POTASSIUM
     Indication: Infection
     Route: 042
     Dates: start: 20011121, end: 20011123
  3. CLONAZEPAM [Suspect]
     Active Substance: CLONAZEPAM
     Indication: Epilepsy
     Route: 042
     Dates: start: 20011112, end: 20011205
  4. RANITIDINE HYDROCHLORIDE [Suspect]
     Active Substance: RANITIDINE HYDROCHLORIDE
     Indication: Prophylaxis
     Dosage: UNKNOWN
     Route: 042
     Dates: start: 20011123, end: 20011126
  5. HEPARIN SODIUM [Suspect]
     Active Substance: HEPARIN SODIUM
     Indication: Thrombosis prophylaxis
     Dosage: UNKNOWN
     Route: 042
     Dates: start: 20011126, end: 20011203
  6. NADROPARIN CALCIUM [Suspect]
     Active Substance: NADROPARIN CALCIUM
     Indication: Thrombosis prophylaxis
     Dosage: UNKNOWN
     Route: 058
     Dates: start: 20011117, end: 20011124
  7. MIDAZOLAM HYDROCHLORIDE [Suspect]
     Active Substance: MIDAZOLAM HYDROCHLORIDE
     Indication: Pain
     Dosage: UNKNOWN
     Route: 042
     Dates: start: 20011113, end: 20011117
  8. EGG PHOSPHOLIPIDS\GLYCERIN\SOYBEAN OIL [Suspect]
     Active Substance: EGG PHOSPHOLIPIDS\GLYCERIN\SOYBEAN OIL
     Indication: Parenteral nutrition
     Route: 042
     Dates: start: 20011121, end: 20011205
  9. UNSPECIFIED INGREDIENT [Suspect]
     Active Substance: UNSPECIFIED INGREDIENT
     Indication: Infection
     Route: 042
     Dates: start: 20011121, end: 20011123
  10. NOVODIGAL (.BETA.-ACETYLDIGOXIN) [Suspect]
     Active Substance: .BETA.-ACETYLDIGOXIN
     Indication: Cardiac failure
     Route: 042
     Dates: start: 20011121, end: 20011202
  11. URSODIOL [Suspect]
     Active Substance: URSODIOL
     Indication: Cholelithiasis
     Route: 048
     Dates: start: 20011123, end: 20011128
  12. ORNITHINE ASPARTATE [Suspect]
     Active Substance: ORNITHINE ASPARTATE
     Indication: Liver disorder
     Route: 048
     Dates: start: 20011124, end: 20011128
  13. ACTRAPID [Suspect]
     Active Substance: INSULIN HUMAN
     Indication: Metabolic disorder
     Dosage: UNKNOWN
     Route: 042
     Dates: start: 20011124, end: 20011202
  14. NOVALGIN (METAMIZOLE SODIUM) [Suspect]
     Active Substance: METAMIZOLE SODIUM
     Indication: Pain
     Route: 042
     Dates: start: 20011128, end: 20011202
  15. LASIX [Suspect]
     Active Substance: FUROSEMIDE
     Indication: Oedema
     Dosage: UNKNOWN
     Route: 042
     Dates: end: 20011126
  16. FOSFOMYCIN [Suspect]
     Active Substance: FOSFOMYCIN
     Indication: Infection
     Dosage: UNKNOWN
     Route: 042
     Dates: start: 20011130, end: 20011205
  17. LAMICTAL [Suspect]
     Active Substance: LAMOTRIGINE
     Indication: Epilepsy
     Route: 048
     Dates: start: 20011112, end: 20011114
  18. CLAFORAN [Suspect]
     Active Substance: CEFOTAXIME SODIUM
     Indication: Infection
     Route: 042
     Dates: start: 20011130, end: 20011201
  19. SULFAMETHOXAZOLE\TRIMETHOPRIM [Suspect]
     Active Substance: SULFAMETHOXAZOLE\TRIMETHOPRIM
     Indication: Infection
     Route: 042
     Dates: start: 20011116, end: 20011120
  20. DIFLUCAN [Suspect]
     Active Substance: FLUCONAZOLE
     Indication: Candida infection
     Dosage: UNKNOWN
     Route: 042
     Dates: start: 20011118, end: 20011120
  21. TAVOR (LORAZEPAM) [Suspect]
     Active Substance: LORAZEPAM
     Indication: Agitation
     Route: 048
     Dates: start: 20011118, end: 20011202
  22. THEOPHYLLINE [Suspect]
     Active Substance: THEOPHYLLINE
     Indication: Bronchospasm
     Route: 042
     Dates: start: 20011205
  23. LACTULOSE [Suspect]
     Active Substance: LACTULOSE
     Indication: Constipation
     Route: 048
     Dates: start: 20011128, end: 20011205
  24. AMINO ACIDS, SOURCE UNSPECIFIED [Suspect]
     Active Substance: AMINO ACIDS, SOURCE UNSPECIFIED
     Indication: Parenteral nutrition
     Dosage: UNKNOWN
     Route: 042
     Dates: start: 20011124, end: 20011130
  25. FERRLECIT [Suspect]
     Active Substance: SODIUM FERRIC GLUCONATE COMPLEX
     Indication: Iron deficiency
     Dosage: UNKNOWN
     Route: 042
     Dates: start: 20011205, end: 20011205
  26. KETAMINE HYDROCHLORIDE [Suspect]
     Active Substance: KETAMINE HYDROCHLORIDE
     Indication: Stupor
     Dosage: UNKNOWN
     Route: 042
     Dates: start: 20011205, end: 20011205
  27. SAB SIMPLEX [Concomitant]
     Indication: Flatulence
     Route: 048
     Dates: end: 20011120
  28. NOREPINEPHRINE HYDROCHLORIDE, (+/-)- [Concomitant]
     Active Substance: NOREPINEPHRINE HYDROCHLORIDE, (+/-)-
     Indication: Shock
     Dosage: UNKNOWN
     Route: 042
     Dates: start: 20011109, end: 20011203
  29. ATOSIL [Concomitant]
     Indication: Agitation
     Route: 042
     Dates: end: 20011111
  30. FERRO-FOLSAN [Concomitant]
     Indication: Iron deficiency
     Route: 048
     Dates: end: 20011128
  31. POTASSIUM CHLORIDE [Concomitant]
     Active Substance: POTASSIUM CHLORIDE
     Indication: Metabolic disorder
     Dosage: UNKNOWN
     Route: 042
     Dates: end: 20011117
  32. CILASTATIN SODIUM\IMIPENEM [Concomitant]
     Active Substance: CILASTATIN SODIUM\IMIPENEM
     Indication: Infection
     Route: 042
     Dates: end: 20011113
  33. FENTANYL [Concomitant]
     Active Substance: FENTANYL
     Indication: Pain
     Dosage: DOSE WAS ALSO REPORTED AS 1.5 MG
     Route: 042
     Dates: start: 20011120, end: 20011120
  34. VANCOMYCIN [Concomitant]
     Active Substance: VANCOMYCIN
     Indication: Infection
     Route: 042
     Dates: end: 20011113
  35. DOBUTAMINE HYDROCHLORIDE [Concomitant]
     Active Substance: DOBUTAMINE HYDROCHLORIDE
     Indication: Cardiac failure
     Route: 042
     Dates: start: 20011121, end: 20011121
  36. MINERALS\PROBIOTICS NOS\VITAMINS [Concomitant]
     Active Substance: MINERALS\PROBIOTICS NOS\VITAMINS
     Indication: Hypovitaminosis
     Dosage: UNKNOWN
     Route: 042
     Dates: start: 20011205, end: 20011205
  37. IRON [Concomitant]
     Active Substance: IRON
     Indication: Iron deficiency
     Dosage: UNKNOWN
     Route: 042
     Dates: end: 20011116
  38. KETAMIN [Concomitant]
     Active Substance: KETAMINE
     Indication: Pain
     Dosage: UNKNOWN
     Route: 042
     Dates: start: 20011113, end: 20011117
  39. ALBUMIN HUMAN [Concomitant]
     Active Substance: ALBUMIN HUMAN
     Indication: Fluid replacement
     Dosage: 100 ML TREATMENT WAS DISCONTINUED ON 16-NOV-2001, 200 ML TREATMENT WAS FROM 21-NOV-2001 TO 24-NOV-2+
     Route: 042
     Dates: end: 20011124
  40. PANTOZOL [Concomitant]
     Active Substance: PANTOPRAZOLE SODIUM
     Indication: Prophylaxis against gastrointestinal ulcer
     Dosage: UNKNOWN
     Route: 042
     Dates: end: 20011121
  41. KONAKION [Concomitant]
     Active Substance: PHYTONADIONE
     Indication: Vitamin K deficiency
     Dosage: DOSE WAS ALSO REPORTED AS 2 MG
     Route: 042
     Dates: end: 20011113
  42. NYSTATIN [Concomitant]
     Active Substance: NYSTATIN
     Indication: Candida infection
     Dosage: FREQUENTLY, SEVERAL TIMES A DAY
     Route: 061
     Dates: end: 20011202
  43. HEPARIN [Concomitant]
     Active Substance: HEPARIN SODIUM
     Indication: Thrombosis prophylaxis
     Dosage: UNKNOWN
     Route: 058
     Dates: start: 20011109, end: 20011109
  44. PREDNISOLONE [Concomitant]
     Active Substance: PREDNISOLONE
     Indication: Colitis ulcerative
     Dosage: UNKNOWN
     Route: 042
     Dates: end: 20011205
  45. VITAMIN B1 [Concomitant]
     Active Substance: THIAMINE HYDROCHLORIDE
     Indication: Vitamin B1 deficiency
     Dosage: DOSE REPORTED AS 100
     Route: 042
     Dates: end: 20011126
  46. DEXTROSE [Concomitant]
     Active Substance: DEXTROSE\DEXTROSE MONOHYDRATE
     Indication: Fluid replacement
     Dosage: DOSE REGIMEN WAS REPORTED AS 5% AT 2000 ML / DAY, 40% AT 500 ML / DAY AND 70 % AT 2000 ML /DAY
     Route: 042
     Dates: end: 20011205
  47. SODIUM CHLORIDE [Concomitant]
     Active Substance: SODIUM CHLORIDE
     Indication: Fluid replacement
     Route: 042
     Dates: end: 20011130
  48. PASPERTIN [Concomitant]
     Indication: Nausea
     Dosage: UNKNOWN
     Route: 042
     Dates: start: 20011113, end: 20011117
  49. VITINTRA [Concomitant]
     Active Substance: ERGOCALCIFEROL\PHYTONADIONE\RETINOL\VITAMIN A PALMITATE
     Indication: Parenteral nutrition
     Dosage: ONE AMPOULE PER DAY
     Route: 042
     Dates: start: 20011121, end: 20011205
  50. PIRITRAMIDE [Concomitant]
     Active Substance: PIRITRAMIDE
     Indication: Pain
     Dosage: 21-NOV-2001 3MG, FOUR TIMES DAILY DISCONTINUED, 05-DEC-2001: 3MG, THREE TIMES A DAY AS REQUIRED
     Route: 042
  51. XYLOMETAZOLINE HYDROCHLORIDE [Concomitant]
     Active Substance: XYLOMETAZOLINE HYDROCHLORIDE
     Indication: Nasopharyngitis
     Route: 045
     Dates: end: 20011130
  52. BRICANYL [Concomitant]
     Active Substance: TERBUTALINE SULFATE
     Indication: Respiratory tract congestion
     Dosage: UNKNOWN
     Route: 042
     Dates: end: 20011112
  53. VALPROIC ACID [Concomitant]
     Active Substance: VALPROIC ACID
     Indication: Epilepsy
     Route: 042
     Dates: end: 20011115
  54. AMINO ACIDS\DEXTROSE\ELECTROLYTES NOS [Concomitant]
     Active Substance: AMINO ACIDS\DEXTROSE\ELECTROLYTES NOS
     Indication: Parenteral nutrition
     Dosage: UNKNOWN
     Route: 042
     Dates: end: 20011123
  55. AKINETON [Concomitant]
     Active Substance: BIPERIDEN HYDROCHLORIDE
     Indication: Extrapyramidal disorder
     Route: 042
     Dates: end: 20011113
  56. CLONT [Concomitant]
     Indication: Infection
     Route: 042
     Dates: start: 20011115, end: 20011120
  57. CALCIUM [Concomitant]
     Active Substance: CALCIUM
     Indication: Calcium deficiency
     Dosage: 26-NOV-2001:10 ML/DAY OF 20% AMPOULE, WAS DISCONTINUED, 05-DEC-2001: ONE AMPOULE OF+
     Route: 042
  58. XANEF [Concomitant]
     Indication: Cardiac failure
     Dosage: UNKNOWN
     Route: 048
     Dates: end: 20011202

REACTIONS (3)
  - Toxic epidermal necrolysis [Recovered/Resolved]
  - Sepsis [Recovered/Resolved]
  - Stevens-Johnson syndrome [Recovered/Resolved]

NARRATIVE: CASE EVENT DATE: 20011128
